FAERS Safety Report 9620328 (Version 2)
Quarter: 2013Q4

REPORT INFORMATION
  Report Type: Spontaneous
  Country: US (occurrence: US)
  Receive Date: 20131014
  Receipt Date: 20131014
  Transmission Date: 20140711
  Serious: No
  Sender: FDA-Public Use
  Company Number: US-ALLERGAN-1217631US

PATIENT
  Age: 76 Year
  Sex: Female

DRUGS (5)
  1. ALPHAGAN P [Suspect]
     Indication: INTRAOCULAR PRESSURE INCREASED
     Dosage: 2 GTT, UNK
     Route: 047
  2. ARIMIDEX [Concomitant]
     Indication: BREAST CANCER
  3. COUMADIN                           /00014802/ [Concomitant]
     Indication: PRODUCT USED FOR UNKNOWN INDICATION
  4. BLOOD PRESSURE MEDICATIONS NOS [Concomitant]
     Indication: PRODUCT USED FOR UNKNOWN INDICATION
  5. TRAVATAN Z [Concomitant]
     Indication: INTRAOCULAR PRESSURE INCREASED
     Dosage: 2 GTT, QHS
     Route: 047

REACTIONS (4)
  - Phlebitis [Unknown]
  - Phlebitis [Unknown]
  - Foot deformity [Unknown]
  - Local swelling [Unknown]
